FAERS Safety Report 25229828 (Version 1)
Quarter: 2025Q2

REPORT INFORMATION
  Report Type: Spontaneous
  Country: US (occurrence: US)
  Receive Date: 20250423
  Receipt Date: 20250423
  Transmission Date: 20250716
  Serious: No
  Sender: ROCHE
  Company Number: US-ROCHE-10000262695

PATIENT
  Sex: Female

DRUGS (28)
  1. XOLAIR PFS [Suspect]
     Active Substance: OMALIZUMAB
     Indication: Angioedema
     Route: 058
  2. XOLAIR PFS [Suspect]
     Active Substance: OMALIZUMAB
  3. ALLEGRA ALLE TAB [Concomitant]
     Route: 048
  4. ALBUTEROL SU AER 108/90 [Concomitant]
  5. BENADRYL ALL TAB [Concomitant]
     Route: 048
  6. CHLORDIAZEPO CAP [Concomitant]
     Route: 048
  7. DIAZEPAM TAB [Concomitant]
     Route: 048
  8. EPINEPHRINE SOL [Concomitant]
  9. ESOMEPRAZOLE [Concomitant]
     Active Substance: ESOMEPRAZOLE
  10. ESTRADIOL [Concomitant]
     Active Substance: ESTRADIOL
     Route: 048
  11. FLUCONAZOLE TAB [Concomitant]
     Route: 048
  12. HYOSCYAMINE TB1 [Concomitant]
  13. LEVOFLOXACIN TAB [Concomitant]
     Route: 048
  14. LEXAPRO TAB [Concomitant]
     Route: 048
  15. LIOTHYRONINE TAB [Concomitant]
     Route: 048
  16. MIRALAX POW [Concomitant]
  17. NASACORT ALL AER [Concomitant]
  18. ONDANSETRON TBD [Concomitant]
  19. ROSUVASTATIN [Concomitant]
     Active Substance: ROSUVASTATIN
     Route: 048
  20. SUMATRIPTAN TAB [Concomitant]
     Route: 048
  21. SYMBICORT [Concomitant]
     Active Substance: BUDESONIDE\FORMOTEROL FUMARATE DIHYDRATE
  22. TYLENOL 8 HO TBC [Concomitant]
  23. VENTOLIN HFA AER 108/90 [Concomitant]
  24. VITAMIN B12 TBC [Concomitant]
  25. VITAMIN D3 POW [Concomitant]
  26. CEFUROXIME A TAB [Concomitant]
     Route: 048
  27. CEPHALEXIN CAP [Concomitant]
     Route: 048
  28. URO-MP CAP [Concomitant]
     Route: 048

REACTIONS (2)
  - Fatigue [Not Recovered/Not Resolved]
  - Off label use [Unknown]
